FAERS Safety Report 12162550 (Version 1)
Quarter: 2016Q1

REPORT INFORMATION
  Report Type: Spontaneous
  Country: US (occurrence: None)
  Receive Date: 20160308
  Receipt Date: 20160308
  Transmission Date: 20160526
  Serious: No
  Sender: FDA-Public Use
  Company Number: None

PATIENT
  Age: 65 Year
  Sex: Male
  Weight: 113.4 kg

DRUGS (9)
  1. TOPROL XL [Concomitant]
     Active Substance: METOPROLOL SUCCINATE
  2. BYETTA [Concomitant]
     Active Substance: EXENATIDE
  3. FISH OIL [Concomitant]
     Active Substance: FISH OIL
  4. RANEXA [Suspect]
     Active Substance: RANOLAZINE
     Indication: ANGINA PECTORIS
     Route: 048
     Dates: start: 20150731, end: 20150831
  5. MVI [Concomitant]
     Active Substance: VITAMINS
  6. COZAAR [Concomitant]
     Active Substance: LOSARTAN POTASSIUM
  7. METFORMIN [Concomitant]
     Active Substance: METFORMIN HYDROCHLORIDE
  8. STARLEX [Concomitant]
  9. IMDUR [Concomitant]
     Active Substance: ISOSORBIDE MONONITRATE

REACTIONS (3)
  - Emotional disorder [None]
  - Initial insomnia [None]
  - Tinnitus [None]

NARRATIVE: CASE EVENT DATE: 20150731
